FAERS Safety Report 6084886-3 (Version None)
Quarter: 2009Q1

REPORT INFORMATION
  Report Type: 
  Country: None (occurrence: None)
  Receive Date: 20090220
  Receipt Date: 20090212
  Transmission Date: 20090719
  Serious: No
  Sender: FDA-Public Use
  Company Number: US-BAYER-200913240NA

PATIENT
  Age: 35 Year
  Sex: Female
  Weight: 181 kg

DRUGS (1)
  1. MAGNEVIST [Suspect]
     Indication: NUCLEAR MAGNETIC RESONANCE IMAGING
     Dosage: TOTAL DAILY DOSE: 20  ML  UNIT DOSE: 20 ML
     Route: 042
     Dates: start: 20090211, end: 20090211

REACTIONS (3)
  - BLOOD PRESSURE DIASTOLIC INCREASED [None]
  - BURNING SENSATION [None]
  - HEART RATE INCREASED [None]
